FAERS Safety Report 9371050 (Version 1)
Quarter: 2013Q2

REPORT INFORMATION
  Report Type: Spontaneous
  Country: US (occurrence: US)
  Receive Date: 20130627
  Receipt Date: 20130627
  Transmission Date: 20140414
  Serious: Yes (Hospitalization)
  Sender: FDA-Public Use
  Company Number: US-B.I. PHARMACEUTICALS,INC./RIDGEFIELD-2013-BI-17962BP

PATIENT
  Age: 83 Year
  Sex: Male
  Weight: 68 kg

DRUGS (7)
  1. DULCOLAX TABLETS [Suspect]
     Indication: CONSTIPATION
     Dates: end: 2010
  2. DULCOLAX TABLETS [Suspect]
     Dosage: 5 MG
     Dates: start: 201305, end: 201305
  3. DULCOLAX TABLETS [Suspect]
     Dosage: 10 MG
     Route: 048
     Dates: start: 20130616, end: 20130616
  4. LIPITOR [Concomitant]
     Route: 048
     Dates: start: 2012
  5. MULTAQ [Concomitant]
     Indication: ARRHYTHMIA
     Dosage: 800 MG
     Route: 048
     Dates: start: 2010
  6. LISINIPRIL [Concomitant]
     Indication: HYPERTENSION
     Route: 048
     Dates: start: 2005
  7. ASPIRIN [Concomitant]
     Dosage: 81 MG
     Route: 048

REACTIONS (11)
  - Loss of consciousness [Recovered/Resolved]
  - Incoherent [Recovered/Resolved]
  - Dizziness [Recovered/Resolved]
  - Eye movement disorder [Recovered/Resolved]
  - Diarrhoea [Recovered/Resolved]
  - Vomiting [Recovered/Resolved]
  - Abdominal pain upper [Recovered/Resolved]
  - Headache [Recovered/Resolved]
  - Diarrhoea [Recovered/Resolved]
  - Overdose [Recovered/Resolved]
  - Dehydration [Recovered/Resolved]
